FAERS Safety Report 5467153-8 (Version None)
Quarter: 2007Q3

REPORT INFORMATION
  Report Type: 
  Country: None (occurrence: None)
  Receive Date: 20070925
  Receipt Date: 20070919
  Transmission Date: 20080115
  Serious: Yes (Other)
  Sender: FDA-Public Use
  Company Number: US-ASTRAZENECA-2007UW22045

PATIENT
  Sex: Female

DRUGS (2)
  1. FASLODEX [Suspect]
  2. COUMADIN [Concomitant]

REACTIONS (3)
  - ARTHRALGIA [None]
  - DERMATITIS ALLERGIC [None]
  - THROMBOSIS [None]
